FAERS Safety Report 4879912-0 (Version None)
Quarter: 2006Q1

REPORT INFORMATION
  Report Type: 
  Country: None (occurrence: None)
  Receive Date: 20060111
  Receipt Date: 20060103
  Transmission Date: 20060701
  Serious: Yes (Other)
  Sender: FDA-Public Use
  Company Number: 2006001629

PATIENT
  Sex: Female

DRUGS (2)
  1. SUDAFED SEVERE COLD CAPLETS (PARACETAMOL, PSEUDOEPHEDRINE, DEXTROMETHO [Suspect]
     Dosage: 2 CAPLETS ONCE, ORAL
     Route: 048
     Dates: start: 20051213, end: 20051213
  2. SUDAFED SINUS NIGHTTIME (PSEUDOEPHEDRINE, TRIPROLIDINE) [Suspect]
     Dosage: 1 TABLETS ONCE, ORAL
     Route: 048
     Dates: start: 20051213, end: 20051213

REACTIONS (2)
  - FEELING HOT [None]
  - LOSS OF CONSCIOUSNESS [None]
